FAERS Safety Report 8699211 (Version 2)
Quarter: 2012Q4

REPORT INFORMATION
  Report Type: 
  Country: GB (occurrence: GB)
  Receive Date: 20120802
  Receipt Date: 20120911
  Transmission Date: 20130627
  Serious: No
  Sender: FDA-Public Use
  Company Number: PHFR2012GB004267

PATIENT
  Sex: Female

DRUGS (3)
  1. CLOZARIL [Suspect]
     Indication: SCHIZOPHRENIA
     Dosage: 200 mg in morning and 300 mg at night
     Route: 048
     Dates: start: 20050503
  2. AMISULPRIDE [Concomitant]
     Dosage: 400 mg, QD
  3. LORAZEPAM [Concomitant]

REACTIONS (1)
  - Vaginal infection [Recovered/Resolved]
